FAERS Safety Report 17261720 (Version 2)
Quarter: 2020Q1

REPORT INFORMATION
  Report Type: Spontaneous
  Country: FR (occurrence: FR)
  Receive Date: 20200113
  Receipt Date: 20200214
  Transmission Date: 20200409
  Serious: Yes (Disabling, Other)
  Sender: FDA-Public Use
  Company Number: FR-TEVA-2020-FR-1165327

PATIENT
  Age: 54 Year
  Sex: Female

DRUGS (2)
  1. CELECOXIB TEVA 200 MG [Suspect]
     Active Substance: CELECOXIB
     Indication: BACK PAIN
     Route: 065
  2. CELEBREX [Suspect]
     Active Substance: CELECOXIB
     Indication: BACK PAIN
     Route: 065

REACTIONS (16)
  - Visual acuity reduced [Unknown]
  - Hypertension [Unknown]
  - Cough [Recovered/Resolved]
  - Retinal vein occlusion [Unknown]
  - Retinal haemorrhage [Unknown]
  - Retinal vein thrombosis [Unknown]
  - Vision blurred [Unknown]
  - Glaucoma [Unknown]
  - Iris neovascularisation [Unknown]
  - Papilloedema [Unknown]
  - Visual field defect [Unknown]
  - Back pain [Recovered/Resolved]
  - Ocular hypertension [Unknown]
  - Macular oedema [Unknown]
  - Visual impairment [Unknown]
  - Influenza like illness [Recovered/Resolved]

NARRATIVE: CASE EVENT DATE: 20160325
